FAERS Safety Report 15371147 (Version 1)
Quarter: 2018Q4

REPORT INFORMATION
  Report Type: Spontaneous
  Country: US (occurrence: US)
  Receive Date: 20180911
  Receipt Date: 20180911
  Transmission Date: 20190204
  Serious: Yes (Other)
  Sender: FDA-Public Use
  Company Number: US-ASSERTIO THERAPEUTICS, INC.-US-2018DEP001747

PATIENT
  Age: 50 Year
  Sex: Female

DRUGS (2)
  1. CAMBIA [Suspect]
     Active Substance: DICLOFENAC POTASSIUM
     Indication: MIGRAINE WITH AURA
     Dosage: 50 MG, 1 PACKET WITH 1-2 OUNCES OF WATER
     Route: 048
     Dates: start: 20180703, end: 20180830
  2. SUMATRIPTAN SUCCINATE. [Concomitant]
     Active Substance: SUMATRIPTAN SUCCINATE
     Indication: PRODUCT USED FOR UNKNOWN INDICATION
     Dosage: UNK

REACTIONS (1)
  - Thrombosis [Recovering/Resolving]

NARRATIVE: CASE EVENT DATE: 20180830
